FAERS Safety Report 12941404 (Version 1)
Quarter: 2016Q4

REPORT INFORMATION
  Report Type: Spontaneous
  Country: US (occurrence: US)
  Receive Date: 20161115
  Receipt Date: 20161115
  Transmission Date: 20170207
  Serious: Yes (Hospitalization)
  Sender: FDA-Public Use
  Company Number: None

PATIENT
  Age: 77 Year
  Sex: Female
  Weight: 152.8 kg

DRUGS (9)
  1. ALLOPURINOL. [Concomitant]
     Active Substance: ALLOPURINOL
  2. PRAVACOL [Concomitant]
     Active Substance: PRAVASTATIN SODIUM
  3. CARDIZEM [Concomitant]
     Active Substance: DILTIAZEM HYDROCHLORIDE
  4. ZAROXYLN [Concomitant]
  5. INSULIN [Concomitant]
     Active Substance: INSULIN NOS
  6. COZAAR [Concomitant]
     Active Substance: LOSARTAN POTASSIUM
  7. LASIX [Concomitant]
     Active Substance: FUROSEMIDE
  8. OXYCODONE [Suspect]
     Active Substance: OXYCODONE
     Indication: PROCEDURAL PAIN
     Dosage: OXYCODONE - DATES OT USE - RECENT
     Route: 048
  9. ASCORBIC ACID. [Concomitant]
     Active Substance: ASCORBIC ACID

REACTIONS (4)
  - Hypercapnia [None]
  - Hypoventilation [None]
  - Hypotension [None]
  - Hypoxia [None]

NARRATIVE: CASE EVENT DATE: 20150925
